FAERS Safety Report 12581257 (Version 1)
Quarter: 2016Q3

REPORT INFORMATION
  Report Type: Spontaneous
  Country: FR (occurrence: FR)
  Receive Date: 20160721
  Receipt Date: 20160721
  Transmission Date: 20161109
  Serious: Yes (Death, Hospitalization, Other)
  Sender: FDA-Public Use
  Company Number: FR-BRISTOL-MYERS SQUIBB COMPANY-BMS-2016-059077

PATIENT
  Age: 94 Year
  Sex: Male

DRUGS (1)
  1. ELIQUIS [Suspect]
     Active Substance: APIXABAN
     Indication: PRODUCT USED FOR UNKNOWN INDICATION
     Dosage: 2.5 MG, BID
     Route: 065

REACTIONS (6)
  - Aspiration [Unknown]
  - Haemoptysis [Not Recovered/Not Resolved]
  - Rectal haemorrhage [Recovered/Resolved]
  - Off label use [Unknown]
  - Lung disorder [Fatal]
  - Cardiac failure [Unknown]

NARRATIVE: CASE EVENT DATE: 20160611
